FAERS Safety Report 12950620 (Version 1)
Quarter: 2016Q4

REPORT INFORMATION
  Report Type: Report from Study
  Country: US (occurrence: US)
  Receive Date: 20161117
  Receipt Date: 20161117
  Transmission Date: 20170207
  Serious: Yes (Other)
  Sender: FDA-Public Use
  Company Number: US-VIIV HEALTHCARE LIMITED-US2016GSK167033

PATIENT
  Sex: Male

DRUGS (9)
  1. CYCLOSPORINE. [Suspect]
     Active Substance: CYCLOSPORINE
     Indication: PROPHYLAXIS AGAINST GRAFT VERSUS HOST DISEASE
     Dosage: (DAY -2 UNTIL DAY +100 IF NO GVHD)
  2. DIPHENHYDRAMINE. [Suspect]
     Active Substance: DIPHENHYDRAMINE
     Indication: PREMEDICATION
  3. METHYLPREDNISOLONE. [Suspect]
     Active Substance: METHYLPREDNISOLONE
     Indication: PROPHYLAXIS AGAINST GRAFT VERSUS HOST DISEASE
     Dosage: 1 MG/KG, QD (INITIATED ON DAY 0, TAPERED ON DAY +21 IF NO SIGNS OF GVHD)
  4. MELPHALAN [Suspect]
     Active Substance: MELPHALAN
     Indication: CHRONIC GRANULOMATOUS DISEASE
     Dosage: 140 MG/M2 ON DAY -3
     Route: 042
  5. FLUDARABINE [Suspect]
     Active Substance: FLUDARABINE PHOSPHATE
     Indication: CHRONIC GRANULOMATOUS DISEASE
     Dosage: 30 MG/M2, QD (DAY -8 TO DAY -4)
     Route: 042
  6. SIROLIMUS. [Suspect]
     Active Substance: SIROLIMUS
     Indication: PROPHYLAXIS AGAINST GRAFT VERSUS HOST DISEASE
     Dosage: (DAY -2 UNTIL DAY +100 IF NO GVHD)
  7. MARAVIROC [Suspect]
     Active Substance: MARAVIROC
     Indication: PRODUCT USED FOR UNKNOWN INDICATION
     Dosage: DAY -3 TO DAY +30
  8. ACETAMINOPHEN. [Suspect]
     Active Substance: ACETAMINOPHEN
     Indication: PREMEDICATION
  9. ALEMTUZUMAB [Suspect]
     Active Substance: ALEMTUZUMAB
     Indication: CHRONIC GRANULOMATOUS DISEASE
     Dosage: 1 MG/KG FROM DAY -14 UNTIL DAY -10
     Route: 058

REACTIONS (1)
  - Clostridium difficile colitis [Recovered/Resolved]
